FAERS Safety Report 9333417 (Version 1)
Quarter: 2013Q2

REPORT INFORMATION
  Report Type: Spontaneous
  Country: US (occurrence: US)
  Receive Date: 20130606
  Receipt Date: 20130606
  Transmission Date: 20140414
  Serious: No
  Sender: FDA-Public Use
  Company Number: US-GLAXOSMITHKLINE-A1013560A

PATIENT
  Sex: Female

DRUGS (5)
  1. LAMICTAL [Suspect]
     Indication: BIPOLAR DISORDER
     Dosage: 50MG TWICE PER DAY
     Route: 048
     Dates: start: 201206
  2. LYRICA [Concomitant]
  3. LISINOPRIL [Concomitant]
  4. TRAMADOL [Concomitant]
  5. IBUPROFEN [Concomitant]

REACTIONS (3)
  - Cough [Unknown]
  - Depression [Unknown]
  - Drug ineffective [Unknown]
